FAERS Safety Report 5169315-6 (Version None)
Quarter: 2006Q4

REPORT INFORMATION
  Report Type: 
  Country: None (occurrence: None)
  Receive Date: 20061211
  Receipt Date: 20060925
  Transmission Date: 20070319
  Serious: Yes (Hospitalization, Other)
  Sender: FDA-Public Use
  Company Number: US-ELI_LILLY_AND_COMPANY-US200609006489

PATIENT
  Age: 42 Year
  Sex: Male

DRUGS (4)
  1. ZYPREXA [Suspect]
     Indication: SCHIZOPHRENIA
     Dosage: 35 MG, EACH EVENING
  2. ZYPREXA [Suspect]
     Dosage: 20 MG, EACH EVENING
     Dates: start: 20000101, end: 20020801
  3. ZYPREXA [Suspect]
     Dosage: 100 MG, UNK
     Dates: start: 20020601
  4. ZYPREXA [Suspect]
     Dosage: 120 MG, UNK
     Dates: start: 20020701

REACTIONS (7)
  - CONFUSIONAL STATE [None]
  - FATIGUE [None]
  - HEPATIC ENCEPHALOPATHY [None]
  - HEPATIC ENZYME ABNORMAL [None]
  - INTENTIONAL OVERDOSE [None]
  - LOSS OF CONSCIOUSNESS [None]
  - PRESCRIBED OVERDOSE [None]
